FAERS Safety Report 7524706-0 (Version None)
Quarter: 2011Q2

REPORT INFORMATION
  Report Type: 
  Country: None (occurrence: None)
  Receive Date: 20110602
  Receipt Date: 20110602
  Transmission Date: 20111010
  Serious: Yes (Other)
  Sender: FDA-Public Use
  Company Number: None

PATIENT
  Age: 48 Year
  Sex: Female
  Weight: 120.2032 kg

DRUGS (2)
  1. YAMIN BAYER [Suspect]
     Indication: POLYCYSTIC OVARIES
     Dosage: 3 MG OF DROSPIRENONE 1 PO
     Route: 048
     Dates: start: 19980101, end: 20110522
  2. YAMIN BAYER [Suspect]
     Indication: PREGNANCY
     Dosage: 3 MG OF DROSPIRENONE 1 PO
     Route: 048
     Dates: start: 19980101, end: 20110522

REACTIONS (4)
  - WEIGHT INCREASED [None]
  - AFFECTIVE DISORDER [None]
  - ALOPECIA [None]
  - MENTAL DISORDER [None]
